FAERS Safety Report 5885654-5 (Version None)
Quarter: 2008Q3

REPORT INFORMATION
  Report Type: 
  Country: None (occurrence: None)
  Receive Date: 20080912
  Receipt Date: 20080905
  Transmission Date: 20090109
  Serious: Yes (Other)
  Sender: FDA-Public Use
  Company Number: MYVW-NO-0808S-0101

PATIENT
  Age: 61 Year
  Sex: Female

DRUGS (10)
  1. MYOVIEW [Suspect]
     Indication: DRUG USE FOR UNKNOWN INDICATION
     Dosage: NR, SINGLE DOSE, I.V.
     Route: 042
     Dates: start: 20080715, end: 20080715
  2. TECHNETIUM (TC99M) GENERATOR  (ULTRA TECHNEKOW FM) [Concomitant]
  3. BUDENOSIDE (BUDENOFALK) [Concomitant]
  4. OMEPRAZOLE [Concomitant]
  5. ACETAMINOPHEN [Concomitant]
  6. ENALAPRIL MALEATE [Concomitant]
  7. METOPROLOL TARTRATE (SELOKEN) [Concomitant]
  8. SIMVASTATIN [Concomitant]
  9. GLUCOSAMINE (GLUKOSAMIN) [Concomitant]
  10. SPIRIVA [Concomitant]

REACTIONS (1)
  - ERYTHEMA MULTIFORME [None]
